FAERS Safety Report 16235056 (Version 2)
Quarter: 2019Q2

REPORT INFORMATION
  Report Type: Spontaneous
  Country: US (occurrence: US)
  Receive Date: 20190424
  Receipt Date: 20190508
  Transmission Date: 20190711
  Serious: Yes (Hospitalization, Other)
  Sender: FDA-Public Use
  Company Number: US-ASTRAZENECA-2018SF27010

PATIENT
  Age: 23634 Day
  Sex: Female

DRUGS (14)
  1. AVANDIA [Concomitant]
     Active Substance: ROSIGLITAZONE MALEATE
  2. PRILOSEC [Suspect]
     Active Substance: OMEPRAZOLE MAGNESIUM
     Route: 048
     Dates: start: 2004, end: 2017
  3. ACIPHEX [Suspect]
     Active Substance: RABEPRAZOLE SODIUM
     Route: 065
     Dates: start: 2004, end: 2017
  4. ALPHAGAN P [Concomitant]
     Active Substance: BRIMONIDINE TARTRATE
  5. PILOCARPINE. [Concomitant]
     Active Substance: PILOCARPINE
  6. ALBUTEROL. [Concomitant]
     Active Substance: ALBUTEROL
  7. HYDROCHLOROTHIAZIDE. [Concomitant]
     Active Substance: HYDROCHLOROTHIAZIDE
  8. TRUSOPT [Concomitant]
     Active Substance: DORZOLAMIDE HYDROCHLORIDE
  9. DIOVAN [Concomitant]
     Active Substance: VALSARTAN
  10. ZOCOR [Concomitant]
     Active Substance: SIMVASTATIN
  11. ENALAPRIL [Concomitant]
     Active Substance: ENALAPRIL
  12. GLYBURIDE. [Concomitant]
     Active Substance: GLYBURIDE
  13. BETOPTIC [Concomitant]
     Active Substance: BETAXOLOL HYDROCHLORIDE
  14. LUMIGAN [Concomitant]
     Active Substance: BIMATOPROST

REACTIONS (4)
  - Chronic kidney disease [Unknown]
  - Acute kidney injury [Unknown]
  - End stage renal disease [Unknown]
  - Renal failure [Unknown]

NARRATIVE: CASE EVENT DATE: 20041007
